FAERS Safety Report 7133615-0 (Version None)
Quarter: 2010Q4

REPORT INFORMATION
  Report Type: 
  Country: None (occurrence: None)
  Receive Date: 20101202
  Receipt Date: 20101123
  Transmission Date: 20110411
  Serious: Yes (Hospitalization, Other)
  Sender: FDA-Public Use
  Company Number: US-MERCK-0911USA02010

PATIENT
  Age: 66 Year
  Sex: Female
  Weight: 71 kg

DRUGS (4)
  1. FOSAMAX [Suspect]
     Indication: OSTEOPOROSIS
     Route: 048
     Dates: start: 20050211, end: 20080920
  2. PIROXICAM [Concomitant]
     Indication: INFLAMMATION
     Route: 065
     Dates: start: 20050211
  3. PREVACID [Concomitant]
     Indication: DYSPEPSIA
     Route: 065
     Dates: start: 20050101
  4. PROTONIX [Concomitant]
     Indication: DYSPEPSIA
     Route: 065
     Dates: start: 20050101

REACTIONS (42)
  - ABDOMINAL PAIN [None]
  - ABSCESS DRAINAGE [None]
  - ANAEMIA [None]
  - ANGINA PECTORIS [None]
  - ARTERIOSCLEROSIS CORONARY ARTERY [None]
  - ARTHRITIS [None]
  - BACK DISORDER [None]
  - BACK PAIN [None]
  - BENIGN BREAST NEOPLASM [None]
  - BREAST DISORDER [None]
  - CATARACT [None]
  - CHRONIC OBSTRUCTIVE PULMONARY DISEASE [None]
  - DENTAL ALVEOLAR ANOMALY [None]
  - DIAPHRAGMATIC HERNIA [None]
  - DISLOCATION OF VERTEBRA [None]
  - DIVERTICULUM INTESTINAL [None]
  - EAR PAIN [None]
  - EDENTULOUS [None]
  - ESSENTIAL HYPERTENSION [None]
  - FIBROCYSTIC BREAST DISEASE [None]
  - GASTROOESOPHAGEAL REFLUX DISEASE [None]
  - HYPERTENSION [None]
  - HYPOTHYROIDISM [None]
  - IMPAIRED HEALING [None]
  - INSOMNIA [None]
  - INTERVERTEBRAL DISC DEGENERATION [None]
  - INTERVERTEBRAL DISC DISPLACEMENT [None]
  - JAW FRACTURE [None]
  - LUMBAR SPINAL STENOSIS [None]
  - MITRAL VALVE DISEASE [None]
  - ORAL INFECTION [None]
  - OSTEITIS [None]
  - OSTEOARTHRITIS [None]
  - OSTEONECROSIS OF JAW [None]
  - OTITIS EXTERNA [None]
  - OTITIS MEDIA [None]
  - PAIN [None]
  - POSTERIOR CAPSULE OPACIFICATION [None]
  - PRIMARY SEQUESTRUM [None]
  - TOOTH ABSCESS [None]
  - TOOTH DEPOSIT [None]
  - TOOTH FRACTURE [None]
